FAERS Safety Report 15937610 (Version 1)
Quarter: 2019Q1

REPORT INFORMATION
  Report Type: Spontaneous
  Country: US (occurrence: US)
  Receive Date: 20190208
  Receipt Date: 20190208
  Transmission Date: 20190417
  Serious: Yes (Hospitalization, Other)
  Sender: FDA-Public Use
  Company Number: None

PATIENT
  Age: 53 Year
  Sex: Female
  Weight: 55.35 kg

DRUGS (1)
  1. INJECTAFER [Suspect]
     Active Substance: FERRIC CARBOXYMALTOSE
     Indication: SERUM FERRITIN DECREASED
     Dosage: ?          QUANTITY:1 750 MG INFUSION;OTHER FREQUENCY:1 INFUSION;?
     Route: 042
     Dates: start: 20180516, end: 20180516

REACTIONS (16)
  - Pruritus [None]
  - Infusion related reaction [None]
  - Hypophosphataemia [None]
  - Paraesthesia [None]
  - Arthralgia [None]
  - Disturbance in attention [None]
  - Bone pain [None]
  - Urticaria [None]
  - Flushing [None]
  - Confusional state [None]
  - Rash [None]
  - Back pain [None]
  - Vision blurred [None]
  - Dizziness [None]
  - Muscular weakness [None]
  - Headache [None]

NARRATIVE: CASE EVENT DATE: 20180516
